FAERS Safety Report 11062219 (Version 1)
Quarter: 2015Q2

REPORT INFORMATION
  Report Type: Spontaneous
  Country: FR (occurrence: None)
  Receive Date: 20150422
  Receipt Date: 20150422
  Transmission Date: 20150821
  Serious: Yes (Other)
  Sender: FDA-Public Use
  Company Number: FR-20150107

PATIENT
  Age: 61 Year
  Sex: Male

DRUGS (1)
  1. DOTAREM [Suspect]
     Active Substance: GADOTERATE MEGLUMINE
     Indication: NUCLEAR MAGNETIC RESONANCE IMAGING
     Dosage: (NOT OTHERWISE SPECIFIED)
     Route: 042
     Dates: start: 20150325, end: 20150325

REACTIONS (2)
  - Thrombophlebitis superficial [None]
  - Deep vein thrombosis [None]

NARRATIVE: CASE EVENT DATE: 20150326
